FAERS Safety Report 26120551 (Version 1)
Quarter: 2025Q4

REPORT INFORMATION
  Report Type: Spontaneous
  Country: US (occurrence: US)
  Receive Date: 20251204
  Receipt Date: 20251204
  Transmission Date: 20260118
  Serious: No
  Sender: ACCORD
  Company Number: US-Accord-491242

PATIENT
  Age: 68 Year
  Sex: Female
  Weight: 61.23 kg

DRUGS (1)
  1. LEVOTHYROXINE SODIUM [Suspect]
     Active Substance: LEVOTHYROXINE SODIUM
     Indication: Hypothyroidism
     Dosage: DAILY
     Route: 048
     Dates: start: 20250605

REACTIONS (3)
  - Abdominal pain upper [Recovered/Resolved]
  - Illness [Unknown]
  - Product substitution issue [Unknown]

NARRATIVE: CASE EVENT DATE: 20250601
